FAERS Safety Report 9212062 (Version 1)
Quarter: 2013Q2

REPORT INFORMATION
  Report Type: Spontaneous
  Country: US (occurrence: US)
  Receive Date: 20130404
  Receipt Date: 20130404
  Transmission Date: 20140414
  Serious: No
  Sender: FDA-Public Use
  Company Number: US-AMGEN-USASP2013017079

PATIENT
  Age: 6 Year
  Sex: Female

DRUGS (2)
  1. ENBREL [Suspect]
     Indication: JUVENILE IDIOPATHIC ARTHRITIS
     Dosage: 0.54 ML, QWK
     Dates: start: 20120501, end: 20130109
  2. METHOTREXATE [Concomitant]
     Dosage: 15 MG, QWK
     Dates: start: 200909

REACTIONS (1)
  - Joint swelling [Not Recovered/Not Resolved]
